FAERS Safety Report 4728417-6 (Version None)
Quarter: 2005Q3

REPORT INFORMATION
  Report Type: 
  Country: None (occurrence: None)
  Receive Date: 20050729
  Receipt Date: 20041006
  Transmission Date: 20060218
  Serious: No
  Sender: FDA-Public Use
  Company Number: US-GLAXOSMITHKLINE-A0528785A

PATIENT
  Age: 7 Year
  Sex: Female

DRUGS (1)
  1. ZANTAC [Suspect]
     Indication: DRUG USE FOR UNKNOWN INDICATION
     Dosage: 8ML TWICE PER DAY
     Route: 048
     Dates: start: 20040923, end: 20041007

REACTIONS (1)
  - URINE ODOUR ABNORMAL [None]
